FAERS Safety Report 10273934 (Version 1)
Quarter: 2014Q1

REPORT INFORMATION
  Report Type: Spontaneous
  Country: US (occurrence: None)
  Receive Date: 20140306
  Receipt Date: 20140306
  Transmission Date: 20141002
  Serious: Yes (Disabling, Other)
  Sender: FDA-Public Use
  Company Number: 163-21880-13120940

PATIENT
  Age: 89 Year
  Sex: Female

DRUGS (6)
  1. REVLIMID [Suspect]
     Indication: LYMPHOMA
     Dosage: 20 MG, 21 IN 28 D, PO
     Route: 048
     Dates: start: 20131107, end: 20131128
  2. METOPROLOL (METOPROLOL) (UNKNOWN) [Concomitant]
  3. TIMOLOL (TIMOLOL) (DROPS) [Concomitant]
  4. DORZOLAMIDE (DORZOLAMIDE) (UNKNOWN) [Concomitant]
  5. FUROSEMIDE (FUROSEMIDE) (UNKNOWN) [Concomitant]
  6. POTASSIUM (POTASSIUM) (UNKNOWN) [Concomitant]

REACTIONS (1)
  - Vision blurred [None]
